FAERS Safety Report 11420775 (Version 3)
Quarter: 2016Q2

REPORT INFORMATION
  Report Type: Spontaneous
  Country: US (occurrence: US)
  Receive Date: 20150826
  Receipt Date: 20160502
  Transmission Date: 20160815
  Serious: Yes (Other)
  Sender: FDA-Public Use
  Company Number: US-BAYER-2015-406074

PATIENT
  Age: 25 Year
  Sex: Female

DRUGS (2)
  1. MIRENA [Suspect]
     Active Substance: LEVONORGESTREL
     Indication: CONTRACEPTION
  2. MIRENA [Suspect]
     Active Substance: LEVONORGESTREL
     Indication: MENORRHAGIA
     Dosage: 20 MCG/24HR, CONT
     Route: 015
     Dates: start: 20150710, end: 20150711

REACTIONS (6)
  - Device difficult to use [None]
  - Device expulsion [None]
  - Post procedural haemorrhage [None]
  - Mobility decreased [None]
  - Procedural vomiting [None]
  - Procedural pain [None]

NARRATIVE: CASE EVENT DATE: 201507
